FAERS Safety Report 6711230-8 (Version None)
Quarter: 2010Q2

REPORT INFORMATION
  Report Type: 
  Country: None (occurrence: None)
  Receive Date: 20100505
  Receipt Date: 20100503
  Transmission Date: 20101027
  Serious: Yes (Death, Life-Threatening, Hospitalization)
  Sender: FDA-Public Use
  Company Number: DE-SANOFI-AVENTIS-2010SA014514

PATIENT
  Age: 59 Year
  Sex: Male
  Weight: 80 kg

DRUGS (2)
  1. ARAVA [Suspect]
     Indication: RHEUMATOID ARTHRITIS
     Dosage: 20 MG EVERY SECOND DAY
     Route: 048
  2. METHOTREXATE [Concomitant]
     Indication: RHEUMATOID ARTHRITIS
     Dosage: 25 MG EVERY WEDNESDAY

REACTIONS (14)
  - ACUTE RESPIRATORY FAILURE [None]
  - BENIGN INTRACRANIAL HYPERTENSION [None]
  - CARDIOPULMONARY FAILURE [None]
  - CONVULSION [None]
  - CSF PRESSURE INCREASED [None]
  - CSF PROTEIN INCREASED [None]
  - DIPLOPIA [None]
  - HEADACHE [None]
  - INCORRECT DOSE ADMINISTERED [None]
  - NAUSEA [None]
  - PAPILLOEDEMA [None]
  - PNEUMONITIS [None]
  - SOMNOLENCE [None]
  - VITH NERVE DISORDER [None]
